FAERS Safety Report 7308218-5 (Version None)
Quarter: 2011Q1

REPORT INFORMATION
  Report Type: 
  Country: None (occurrence: None)
  Receive Date: 20110223
  Receipt Date: 20110219
  Transmission Date: 20110831
  Serious: Yes (Hospitalization)
  Sender: FDA-Public Use
  Company Number: US-PFIZER INC-2011036770

PATIENT
  Sex: Male
  Weight: 158 kg

DRUGS (3)
  1. TOVIAZ [Suspect]
     Indication: HYPERTONIC BLADDER
     Dosage: UNK
     Route: 048
     Dates: start: 20110215, end: 20110218
  2. ZAROXOLYN [Concomitant]
     Indication: OEDEMA
     Dosage: UNK
     Route: 048
  3. AMLODIPINE [Concomitant]
     Indication: HYPERTENSION
     Dosage: 5 MG, 1X/DAY
     Route: 048

REACTIONS (1)
  - GASTROINTESTINAL HYPOMOTILITY [None]
